FAERS Safety Report 8598399-8 (Version None)
Quarter: 2012Q3

REPORT INFORMATION
  Report Type: 
  Country: None (occurrence: None)
  Receive Date: 20120816
  Receipt Date: 20120813
  Transmission Date: 20120928
  Serious: Yes (Death, Other)
  Sender: FDA-Public Use
  Company Number: DE-ABBOTT-12P-062-0961110-00

PATIENT
  Sex: Male

DRUGS (16)
  1. HUMIRA [Suspect]
     Indication: RHEUMATOID ARTHRITIS
     Route: 058
     Dates: start: 20060801, end: 20070101
  2. TOCILIZUMAB [Suspect]
     Indication: POLYARTHRITIS
     Dates: start: 20090301, end: 20090601
  3. SULFASALAZINE [Suspect]
     Indication: POLYARTHRITIS
     Dates: start: 20090701, end: 20110301
  4. METHOTREXATE [Suspect]
     Indication: POLYARTHRITIS
     Dates: start: 20031101
  5. SULFASALAZINE [Concomitant]
     Indication: PRODUCT USED FOR UNKNOWN INDICATION
     Dates: start: 20090701, end: 20110301
  6. METHOTREXATE [Concomitant]
     Indication: RHEUMATOID ARTHRITIS
     Dates: start: 20031101, end: 20080901
  7. ANAKINRA [Concomitant]
     Indication: PRODUCT USED FOR UNKNOWN INDICATION
     Dates: start: 20080801, end: 20081001
  8. ANAKINRA [Suspect]
     Indication: POLYARTHRITIS
     Dates: start: 20080801, end: 20081001
  9. ABATACEPT [Concomitant]
     Indication: PRODUCT USED FOR UNKNOWN INDICATION
     Dates: start: 20071201, end: 20081001
  10. GOLIMUMAB [Concomitant]
     Indication: PRODUCT USED FOR UNKNOWN INDICATION
     Dates: start: 20110301, end: 20110801
  11. GOLIMUMAB [Suspect]
     Indication: POLYARTHRITIS
     Dates: start: 20110301, end: 20110801
  12. METHOTREXATE [Concomitant]
     Dates: start: 20090501
  13. TOCILIZUMAB [Concomitant]
     Indication: PRODUCT USED FOR UNKNOWN INDICATION
     Dates: start: 20090301, end: 20090601
  14. CERTOLIZUMAB [Concomitant]
     Indication: PRODUCT USED FOR UNKNOWN INDICATION
     Dosage: 200 MG NOS
     Dates: start: 20110901
  15. ABATACEPT [Suspect]
     Indication: POLYARTHRITIS
     Dates: start: 20071201, end: 20080601
  16. CIMZIA [Suspect]
     Indication: POLYARTHRITIS
     Dosage: CUMULATIVE DOSE: 200 MG
     Dates: start: 20110901, end: 20111001

REACTIONS (3)
  - METASTASES TO LIVER [None]
  - METASTATIC BRONCHIAL CARCINOMA [None]
  - MALIGNANT NEOPLASM OF PLEURA [None]
